FAERS Safety Report 9250255 (Version 19)
Quarter: 2015Q4

REPORT INFORMATION
  Report Type: Report from Study
  Country: CA (occurrence: CA)
  Receive Date: 20130424
  Receipt Date: 20151020
  Transmission Date: 20160305
  Serious: Yes (Other)
  Sender: FDA-Public Use
  Company Number: CA-ROCHE-1146984

PATIENT
  Age: 44 Year
  Sex: Female
  Weight: 94 kg

DRUGS (19)
  1. CLONAZEPAM. [Concomitant]
     Active Substance: CLONAZEPAM
  2. ACTEMRA [Suspect]
     Active Substance: TOCILIZUMAB
     Route: 042
     Dates: start: 20150625
  3. RITUXAN [Suspect]
     Active Substance: RITUXIMAB
     Indication: RHEUMATOID ARTHRITIS
     Route: 042
     Dates: start: 20121015, end: 20130625
  4. QUETIAPINE [Concomitant]
     Active Substance: QUETIAPINE
  5. EFFEXOR [Concomitant]
     Active Substance: VENLAFAXINE HYDROCHLORIDE
  6. ACTEMRA [Suspect]
     Active Substance: TOCILIZUMAB
     Indication: RHEUMATOID ARTHRITIS
     Dosage: LAST DOSE OF TOCILIZUMAB 05/DEC/2014
     Route: 042
     Dates: start: 20140829, end: 20150625
  7. ACTEMRA [Suspect]
     Active Substance: TOCILIZUMAB
     Route: 042
     Dates: start: 20150313
  8. METHOTREXATE [Concomitant]
     Active Substance: METHOTREXATE
     Dosage: STOPPED
     Route: 065
  9. FOLIC ACID. [Concomitant]
     Active Substance: FOLIC ACID
     Dosage: STOPPED
     Route: 065
  10. ATORVASTATIN CALCIUM. [Concomitant]
     Active Substance: ATORVASTATIN CALCIUM
  11. COVERSYL [Concomitant]
     Active Substance: PERINDOPRIL
  12. CETIRIZINE [Concomitant]
     Active Substance: CETIRIZINE HYDROCHLORIDE
     Indication: PREMEDICATION
     Route: 048
     Dates: start: 20121029
  13. ACETAMINOPHEN. [Concomitant]
     Active Substance: ACETAMINOPHEN
     Indication: PREMEDICATION
     Route: 048
     Dates: start: 20121015, end: 20130625
  14. ALEVE [Concomitant]
     Active Substance: NAPROXEN SODIUM
  15. FOLIC ACID. [Concomitant]
     Active Substance: FOLIC ACID
  16. METHYLPREDNISOLONE. [Concomitant]
     Active Substance: METHYLPREDNISOLONE
     Indication: PREMEDICATION
     Route: 042
     Dates: start: 20121015, end: 20130625
  17. DIPHENHYDRAMINE HCL [Concomitant]
     Active Substance: DIPHENHYDRAMINE HYDROCHLORIDE
     Indication: PREMEDICATION
     Route: 048
     Dates: start: 20121015, end: 20121015
  18. ZOPICLONE [Concomitant]
     Active Substance: ZOPICLONE
  19. GLUMETZA [Concomitant]
     Active Substance: METFORMIN HYDROCHLORIDE

REACTIONS (21)
  - Depression [Not Recovered/Not Resolved]
  - Blister [Recovered/Resolved]
  - Hepatic enzyme abnormal [Unknown]
  - Alopecia [Not Recovered/Not Resolved]
  - Arthropod bite [Recovering/Resolving]
  - Blood cholesterol abnormal [Unknown]
  - Infusion related reaction [Recovered/Resolved]
  - Influenza like illness [Recovered/Resolved]
  - Oropharyngeal pain [Unknown]
  - Drug effect decreased [Unknown]
  - Influenza [Not Recovered/Not Resolved]
  - Arthralgia [Not Recovered/Not Resolved]
  - Infected bite [Unknown]
  - Alopecia [Unknown]
  - Pyrexia [Unknown]
  - Skin ulcer [Unknown]
  - Back pain [Not Recovered/Not Resolved]
  - Drug ineffective [Unknown]
  - Wound [Recovered/Resolved]
  - Dysuria [Recovering/Resolving]
  - Laceration [Unknown]

NARRATIVE: CASE EVENT DATE: 201301
